FAERS Safety Report 8275916-9 (Version None)
Quarter: 2012Q2

REPORT INFORMATION
  Report Type: 
  Country: None (occurrence: None)
  Receive Date: 20120412
  Receipt Date: 20120406
  Transmission Date: 20120825
  Serious: No
  Sender: FDA-Public Use
  Company Number: US-PFIZER INC-2012042514

PATIENT
  Sex: Female
  Weight: 68 kg

DRUGS (5)
  1. SUTENT [Suspect]
     Dosage: 25 MG/ DAY
  2. SUTENT [Suspect]
     Dosage: 37.5 MG/ DAY
  3. LISINOPRIL [Concomitant]
     Indication: HYPERTENSION
     Dosage: UNK
  4. GLUCOPHAGE [Concomitant]
     Indication: DIABETES MELLITUS
     Dosage: UNK
  5. SUTENT [Suspect]
     Indication: NEOPLASM MALIGNANT
     Dosage: 12.5 MG, UNK
     Route: 048
     Dates: start: 20120116

REACTIONS (4)
  - NERVOUSNESS [None]
  - GASTROINTESTINAL INFECTION [None]
  - FATIGUE [None]
  - FEELING JITTERY [None]
